FAERS Safety Report 6239814-4 (Version None)
Quarter: 2009Q2

REPORT INFORMATION
  Report Type: 
  Country: None (occurrence: None)
  Receive Date: 20090618
  Receipt Date: 20090618
  Transmission Date: 20091009
  Serious: Yes (Other)
  Sender: FDA-Public Use
  Company Number: None

PATIENT
  Sex: Female
  Weight: 63.5036 kg

DRUGS (1)
  1. ZICAM EXTREME CONGESTION RELIEF NO DRIP LIQUID NASAL GEL MATRIXX INITI [Suspect]
     Indication: NASAL CONGESTION
     Dosage: 1-3 SQUIRTS INTO NOSTRILS 2 TIMES DAILY NASAL
     Route: 045
     Dates: start: 20090520, end: 20090603

REACTIONS (4)
  - AGEUSIA [None]
  - ANOSMIA [None]
  - SINUSITIS [None]
  - TREATMENT FAILURE [None]
